FAERS Safety Report 7645050-7 (Version None)
Quarter: 2011Q3

REPORT INFORMATION
  Report Type: 
  Country: None (occurrence: None)
  Receive Date: 20110729
  Receipt Date: 20110718
  Transmission Date: 20111222
  Serious: Yes (Other)
  Sender: FDA-Public Use
  Company Number: CN-GLAXOSMITHKLINE-B0735698A

PATIENT
  Age: 63 Year
  Sex: Female

DRUGS (3)
  1. ONDANSETRON [Suspect]
     Dosage: 8MG TWICE PER DAY
     Route: 042
  2. OMEPRAZOLE [Suspect]
     Indication: CHEMOTHERAPY
     Dosage: 40MG PER DAY
     Route: 042
  3. OXALIPLATIN [Concomitant]
     Indication: CHEMOTHERAPY
     Dosage: 150MG PER DAY
     Route: 042

REACTIONS (4)
  - CHILLS [None]
  - CHEST DISCOMFORT [None]
  - TREMOR [None]
  - DYSPNOEA [None]
